FAERS Safety Report 6307714-7 (Version None)
Quarter: 2009Q3

REPORT INFORMATION
  Report Type: 
  Country: None (occurrence: None)
  Receive Date: 20090813
  Receipt Date: 20090804
  Transmission Date: 20100115
  Serious: Yes (Disabling, Other)
  Sender: FDA-Public Use
  Company Number: PHHO2009ZA09662

PATIENT
  Sex: Female
  Weight: 88 kg

DRUGS (4)
  1. DICLOFENAC [Suspect]
     Indication: ARTHRITIS
     Dosage: DOUBLE BLIND
     Route: 048
     Dates: start: 20080626, end: 20080723
  2. OMEPRAZOLE [Concomitant]
  3. PARACETAMOL [Concomitant]
  4. NAPACOD [Concomitant]

REACTIONS (10)
  - ATRIAL FIBRILLATION [None]
  - ATRIAL FLUTTER [None]
  - CEREBROVASCULAR ACCIDENT [None]
  - FACIAL PARESIS [None]
  - GAIT DISTURBANCE [None]
  - HEADACHE [None]
  - MOVEMENT DISORDER [None]
  - MUSCULAR WEAKNESS [None]
  - SENSORY LOSS [None]
  - SPEECH DISORDER [None]
